FAERS Safety Report 5035138-1 (Version None)
Quarter: 2006Q2

REPORT INFORMATION
  Report Type: 
  Country: None (occurrence: None)
  Receive Date: 20060627
  Receipt Date: 20060614
  Transmission Date: 20061013
  Serious: Yes (Other)
  Sender: FDA-Public Use
  Company Number: PHBS2006SE08845

PATIENT
  Age: 78 Year
  Sex: Male

DRUGS (2)
  1. ZOMETA [Suspect]
     Dosage: 4 MG, UNK
     Route: 065
  2. FOSAMAX [Concomitant]
     Route: 065

REACTIONS (3)
  - BONE DISORDER [None]
  - ORAL MUCOSAL DISORDER [None]
  - OSTEONECROSIS [None]
